FAERS Safety Report 9261663 (Version 2)
Quarter: 2015Q1

REPORT INFORMATION
  Report Type: Spontaneous
  Country: US (occurrence: US)
  Receive Date: 20130429
  Receipt Date: 20150122
  Transmission Date: 20150721
  Serious: Yes (Hospitalization, Other)
  Sender: FDA-Public Use
  Company Number: US-PFIZER INC-2013131780

PATIENT
  Age: 46 Year
  Sex: Female
  Weight: 52 kg

DRUGS (8)
  1. LYRICA [Suspect]
     Active Substance: PREGABALIN
     Indication: FIBROMYALGIA
     Dosage: 200 MG, 3X/DAY
     Route: 048
  2. LYRICA [Suspect]
     Active Substance: PREGABALIN
     Indication: NEUROPATHY PERIPHERAL
  3. CLONAZEPAM. [Concomitant]
     Active Substance: CLONAZEPAM
     Dosage: UNK
  4. FENTANYL. [Concomitant]
     Active Substance: FENTANYL
     Dosage: UNK
  5. LYRICA [Suspect]
     Active Substance: PREGABALIN
     Indication: NERVE INJURY
  6. PERCOCET [Concomitant]
     Active Substance: ACETAMINOPHEN\OXYCODONE HYDROCHLORIDE
     Dosage: UNK
  7. SOMA [Concomitant]
     Active Substance: CARISOPRODOL
     Dosage: UNK
  8. LORATADINE. [Concomitant]
     Active Substance: LORATADINE
     Dosage: UNK

REACTIONS (15)
  - Walking aid user [Unknown]
  - Musculoskeletal stiffness [Unknown]
  - Feeling abnormal [Unknown]
  - Insomnia [Unknown]
  - Systemic lupus erythematosus [Unknown]
  - Meningitis [Unknown]
  - Encephalitis [Unknown]
  - Tremor [Unknown]
  - Meningitis meningococcal [Unknown]
  - Renal disorder [Unknown]
  - Immunosuppression [Unknown]
  - Apparent death [Unknown]
  - Coma [Unknown]
  - Rheumatoid arthritis [Unknown]
  - Eating disorder [Unknown]

NARRATIVE: CASE EVENT DATE: 201106
